FAERS Safety Report 10247094 (Version 2)
Quarter: 2014Q3

REPORT INFORMATION
  Report Type: Spontaneous
  Country: US (occurrence: None)
  Receive Date: 20140617
  Receipt Date: 20140711
  Transmission Date: 20150326
  Serious: Yes (Death, Hospitalization)
  Sender: FDA-Public Use
  Company Number: US-001049

PATIENT
  Age: 55 Year
  Sex: Male

DRUGS (2)
  1. GATTEX [Suspect]
     Active Substance: TEDUGLUTIDE\WATER
     Indication: SHORT-BOWEL SYNDROME
     Dosage: (0.25 ML QD, STREN/VOLUM: 0.25 ML/FREQU: ONCE A DAY SUBCUTANEOUS
     Route: 058
     Dates: start: 20130917, end: 2014
  2. SOLUTION FOR PARENTERAL NUTRITION [Concomitant]

REACTIONS (2)
  - Death [None]
  - Hypophagia [None]

NARRATIVE: CASE EVENT DATE: 20140516
